FAERS Safety Report 12443438 (Version 6)
Quarter: 2019Q3

REPORT INFORMATION
  Report Type: Report from Study
  Country: CA (occurrence: CA)
  Receive Date: 20160607
  Receipt Date: 20190925
  Transmission Date: 20191004
  Serious: Yes (Hospitalization, Other)
  Sender: FDA-Public Use
  Company Number: CA-REGENERON PHARMACEUTICALS, INC.-2016-17986

PATIENT

DRUGS (1)
  1. EYLEA [Suspect]
     Active Substance: AFLIBERCEPT
     Indication: DIABETIC RETINAL OEDEMA
     Dosage: UNK
     Route: 031

REACTIONS (9)
  - Dehydration [Unknown]
  - Gastroenteritis [Unknown]
  - Visual impairment [Unknown]
  - Endophthalmitis [Recovered/Resolved]
  - Hypertension [Unknown]
  - Blood cholesterol increased [Unknown]
  - Malaise [Recovered/Resolved]
  - Eye infection [Unknown]
  - Vision blurred [Unknown]

NARRATIVE: CASE EVENT DATE: 2016
